FAERS Safety Report 7397822-4 (Version None)
Quarter: 2011Q2

REPORT INFORMATION
  Report Type: 
  Country: None (occurrence: None)
  Receive Date: 20110406
  Receipt Date: 20110405
  Transmission Date: 20111010
  Serious: No
  Sender: FDA-Public Use
  Company Number: US-TEVA-273564USA

PATIENT
  Sex: Female
  Weight: 61.29 kg

DRUGS (1)
  1. PLAN B ONE-STEP [Suspect]
     Indication: POST COITAL CONTRACEPTION
     Route: 048
     Dates: start: 20110320, end: 20110320

REACTIONS (3)
  - VULVOVAGINAL BURNING SENSATION [None]
  - MENSTRUATION IRREGULAR [None]
  - VULVOVAGINAL PAIN [None]
